FAERS Safety Report 4694287-8 (Version None)
Quarter: 2005Q2

REPORT INFORMATION
  Report Type: 
  Country: None (occurrence: None)
  Receive Date: 20050620
  Receipt Date: 20050616
  Transmission Date: 20051028
  Serious: Yes (Other)
  Sender: FDA-Public Use
  Company Number: PHNU2005DE02287

PATIENT
  Sex: Male

DRUGS (1)
  1. LEPONEX / CLOZARIL (CLOZAPINE) [Suspect]
     Dosage: UP TO 300MG/DAY
     Route: 048

REACTIONS (4)
  - BOWEL MOVEMENT IRREGULARITY [None]
  - COLITIS ULCERATIVE [None]
  - COLONOSCOPY ABNORMAL [None]
  - HAEMATOCHEZIA [None]
